FAERS Safety Report 4354546-5 (Version None)
Quarter: 2004Q2

REPORT INFORMATION
  Report Type: 
  Country: None (occurrence: None)
  Receive Date: 20040503
  Receipt Date: 20040420
  Transmission Date: 20050107
  Serious: Yes (Other)
  Sender: FDA-Public Use
  Company Number: 2004018388

PATIENT
  Age: 59 Year
  Sex: Male

DRUGS (4)
  1. LIPITOR [Suspect]
     Indication: HYPERLIPIDAEMIA
     Dosage: 10 MG (DAILY), ORAL
     Route: 048
     Dates: start: 20030801
  2. DILANTIN [Suspect]
     Indication: EPILEPSY
     Dosage: 400 MG (QID), ORAL
     Route: 048
     Dates: start: 19500101
  3. PHENOBARBITAL TAB [Concomitant]
  4. CARBAMAZEPINE [Concomitant]

REACTIONS (4)
  - EPILEPSY [None]
  - HAEMORRHOIDS [None]
  - HIP ARTHROPLASTY [None]
  - HYPERLIPIDAEMIA [None]
